FAERS Safety Report 6784323-7 (Version None)
Quarter: 2010Q2

REPORT INFORMATION
  Report Type: 
  Country: None (occurrence: None)
  Receive Date: 20100617
  Receipt Date: 20100522
  Transmission Date: 20101027
  Serious: No
  Sender: FDA-Public Use
  Company Number: SPI201000140

PATIENT
  Sex: Female

DRUGS (1)
  1. AMITIZA [Suspect]
     Indication: CONSTIPATION
     Dosage: 24 MCG, BID, ORAL; 24 MCG, QD, ORAL
     Route: 048

REACTIONS (3)
  - CHEST DISCOMFORT [None]
  - INSOMNIA [None]
  - NAUSEA [None]
